FAERS Safety Report 20652974 (Version 1)
Quarter: 2022Q1

REPORT INFORMATION
  Report Type: Spontaneous
  Country: US (occurrence: US)
  Receive Date: 20220330
  Receipt Date: 20220330
  Transmission Date: 20220424
  Serious: Yes (Hospitalization)
  Sender: FDA-Public Use
  Company Number: US-MYLANLABS-2022M1023447

PATIENT
  Age: 12 Month
  Sex: Female

DRUGS (4)
  1. LEVETIRACETAM [Suspect]
     Active Substance: LEVETIRACETAM
     Indication: Epilepsia partialis continua
     Dosage: UNK, HIGH DOSES
     Route: 065
  2. FOSPHENYTOIN [Suspect]
     Active Substance: FOSPHENYTOIN
     Indication: Epilepsia partialis continua
     Dosage: UNK
     Route: 065
  3. MIDAZOLAM [Suspect]
     Active Substance: MIDAZOLAM
     Indication: Epilepsia partialis continua
     Dosage: UNK, HIGH DOSES
     Route: 065
  4. PENTOBARBITAL [Concomitant]
     Active Substance: PENTOBARBITAL
     Indication: Epilepsia partialis continua
     Dosage: UNK, THERAPEUTIC PENTOBARBITAL COMA
     Route: 065

REACTIONS (1)
  - Drug ineffective [Unknown]
